FAERS Safety Report 7052813-8 (Version None)
Quarter: 2010Q4

REPORT INFORMATION
  Report Type: 
  Country: None (occurrence: None)
  Receive Date: 20101012
  Receipt Date: 20101001
  Transmission Date: 20110411
  Serious: Yes (Death, Hospitalization)
  Sender: FDA-Public Use
  Company Number: WAES 1008USA03744

PATIENT
  Age: 59 Year
  Sex: Male

DRUGS (17)
  1. ISENTRESS [Suspect]
     Indication: HIV INFECTION
     Dosage: 800 MG/DAILY/PO
     Route: 048
     Dates: start: 20081227, end: 20091016
  2. INJ METHOTREXATE UNK [Suspect]
     Indication: LYMPHOMA
     Dosage: 4630 MG/DAILY/IV ; 4600 MG/DAILY/IV ; 4600 MG/DAILY/IV
     Route: 042
     Dates: start: 20090604, end: 20090604
  3. INJ METHOTREXATE UNK [Suspect]
     Indication: LYMPHOMA
     Dosage: 4630 MG/DAILY/IV ; 4600 MG/DAILY/IV ; 4600 MG/DAILY/IV
     Route: 042
     Dates: start: 20090723, end: 20090723
  4. INJ METHOTREXATE UNK [Suspect]
     Indication: LYMPHOMA
     Dosage: 4630 MG/DAILY/IV ; 4600 MG/DAILY/IV ; 4600 MG/DAILY/IV
     Route: 042
     Dates: start: 20090806, end: 20090806
  5. BAKTAR [Concomitant]
  6. COZAAR [Concomitant]
  7. DEXART [Concomitant]
  8. FOSACVAIR [Concomitant]
  9. FUNGUARD [Concomitant]
  10. GLYCEREG [Concomitant]
  11. GRAN [Concomitant]
  12. MEROPEN [Concomitant]
  13. TAIPERACILIN [Concomitant]
  14. TRUVADA [Concomitant]
  15. AMLODIPINE [Concomitant]
  16. CEFAZIDIME [Concomitant]
  17. VANCOMYCIN [Concomitant]

REACTIONS (18)
  - ALANINE AMINOTRANSFERASE INCREASED [None]
  - ANAEMIA [None]
  - ASPARTATE AMINOTRANSFERASE INCREASED [None]
  - BLOOD ALKALINE PHOSPHATASE INCREASED [None]
  - BLOOD CHLORIDE INCREASED [None]
  - BLOOD LACTATE DEHYDROGENASE INCREASED [None]
  - BLOOD POTASSIUM DECREASED [None]
  - BLOOD SODIUM DECREASED [None]
  - BLOOD SODIUM INCREASED [None]
  - DRUG RESISTANCE [None]
  - LYMPHOMA [None]
  - MALIGNANT NEOPLASM PROGRESSION [None]
  - METASTASES TO CENTRAL NERVOUS SYSTEM [None]
  - MULTI-ORGAN FAILURE [None]
  - NEUTROPHIL PERCENTAGE INCREASED [None]
  - THROMBOCYTOPENIA [None]
  - WHITE BLOOD CELL COUNT DECREASED [None]
  - WHITE BLOOD CELL COUNT INCREASED [None]
